FAERS Safety Report 7522518-5 (Version None)
Quarter: 2011Q2

REPORT INFORMATION
  Report Type: 
  Country: None (occurrence: None)
  Receive Date: 20110603
  Receipt Date: 20110524
  Transmission Date: 20111010
  Serious: Yes (Hospitalization, Other)
  Sender: FDA-Public Use
  Company Number: FR-PFIZER INC-2010056068

PATIENT
  Age: 63 Year
  Sex: Female
  Weight: 54 kg

DRUGS (11)
  1. IRINOTECAN HCL [Suspect]
     Indication: METASTASES TO PERITONEUM
     Dosage: 229 MG DAILY
     Route: 033
     Dates: start: 20100315, end: 20100315
  2. ACETAMINOPHEN [Concomitant]
     Dosage: 1 G
     Route: 042
     Dates: start: 20100319, end: 20100323
  3. ATARAX [Concomitant]
     Dosage: 100MG/2ML DAILY
     Route: 042
     Dates: start: 20100320, end: 20100322
  4. MITOMYCIN [Suspect]
     Indication: METASTASES TO PERITONEUM
     Dosage: 37 MG DAILY
     Route: 033
     Dates: start: 20100315, end: 20100315
  5. CLAMOXYL [Concomitant]
     Dosage: 1 G
     Route: 042
     Dates: start: 20100319
  6. ACETAMINOPHEN [Concomitant]
     Dosage: 1 G
     Route: 042
     Dates: start: 20100414
  7. CLAMOXYL [Concomitant]
     Dosage: 1 G, 2X/DAY
     Dates: start: 20100315, end: 20100317
  8. ASPEGIC 325 [Concomitant]
     Dosage: 500 MG DAILY
     Route: 042
     Dates: start: 20100416
  9. TRAMADOL HCL [Concomitant]
     Dosage: 100 MG/2 ML DAILY
     Route: 042
     Dates: start: 20100321
  10. ACETAMINOPHEN [Concomitant]
     Dosage: 1 G, EVERY 6 HOURS
     Route: 042
     Dates: start: 20100315, end: 20100318
  11. ATARAX [Concomitant]
     Dosage: 100MG/2ML DAILY
     Route: 042
     Dates: start: 20100409

REACTIONS (5)
  - PORTAL VEIN THROMBOSIS [None]
  - ASCITES [None]
  - PLEURAL EFFUSION [None]
  - NUTRITIONAL CONDITION ABNORMAL [None]
  - PLEURISY [None]
